FAERS Safety Report 25232075 (Version 1)
Quarter: 2025Q2

REPORT INFORMATION
  Report Type: Report from Study
  Country: US (occurrence: US)
  Receive Date: 20250423
  Receipt Date: 20250423
  Transmission Date: 20250716
  Serious: Yes (Other)
  Sender: ALEXION PHARMACEUTICALS
  Company Number: US-AstraZeneca-CH-00852365A

PATIENT

DRUGS (1)
  1. ULTOMIRIS [Suspect]
     Active Substance: RAVULIZUMAB-CWVZ
     Indication: Myasthenia gravis
     Route: 065

REACTIONS (5)
  - Breast cancer [Unknown]
  - Myasthenia gravis [Unknown]
  - Neuropathy peripheral [Unknown]
  - Peroneal nerve palsy [Unknown]
  - Memory impairment [Unknown]
